FAERS Safety Report 6635952-2 (Version None)
Quarter: 2010Q1

REPORT INFORMATION
  Report Type: 
  Country: None (occurrence: None)
  Receive Date: 20100316
  Receipt Date: 20100309
  Transmission Date: 20100710
  Serious: Yes (Death)
  Sender: FDA-Public Use
  Company Number: US-JNJFOC-20100303769

PATIENT

DRUGS (1)
  1. FENTANYL [Suspect]
     Indication: DRUG USE FOR UNKNOWN INDICATION
     Route: 042

REACTIONS (2)
  - DRUG TOXICITY [None]
  - INTENTIONAL DRUG MISUSE [None]
